FAERS Safety Report 9392884 (Version 4)
Quarter: 2013Q3

REPORT INFORMATION
  Report Type: Spontaneous
  Country: CO (occurrence: CO)
  Receive Date: 20130710
  Receipt Date: 20130808
  Transmission Date: 20140515
  Serious: Yes (Other)
  Sender: FDA-Public Use
  Company Number: CO-VERTEX PHARMACEUTICALS INC-2013-007014

PATIENT
  Age: 33 Year
  Sex: Male
  Weight: 105 kg

DRUGS (5)
  1. INCIVO [Suspect]
     Indication: HEPATITIS C
     Dosage: 375 MG, TID, TABLET
     Route: 048
     Dates: start: 20130607
  2. INTERFERON [Concomitant]
     Indication: HEPATITIS C
     Dosage: DOSAGE FORM: AMPOULES
     Route: 058
     Dates: start: 20130607
  3. RIBAVIRIN [Concomitant]
     Indication: HEPATITIS C
     Dosage: DOSAGE FORM: TABLET
     Route: 048
     Dates: start: 20130607
  4. RIBAVIRIN [Concomitant]
     Dosage: 200 MG, TID, TABLET
     Route: 048
  5. RIBAVIRIN [Concomitant]
     Dosage: DOSAGE FORM: TABLET
     Route: 048

REACTIONS (12)
  - Sweat gland disorder [Unknown]
  - Anorectal disorder [Not Recovered/Not Resolved]
  - Somnolence [Unknown]
  - Fatigue [Unknown]
  - Fatigue [Unknown]
  - Anorectal disorder [Unknown]
  - Pain [Unknown]
  - Diarrhoea [Not Recovered/Not Resolved]
  - Pruritus [Unknown]
  - Anorectal discomfort [Unknown]
  - Rash [Not Recovered/Not Resolved]
  - Nausea [Not Recovered/Not Resolved]
